FAERS Safety Report 15662899 (Version 4)
Quarter: 2019Q4

REPORT INFORMATION
  Report Type: Spontaneous
  Country: US (occurrence: US)
  Receive Date: 20181127
  Receipt Date: 20191206
  Transmission Date: 20200122
  Serious: Yes (Other)
  Sender: FDA-Public Use
  Company Number: US-SA-2018SA321410

PATIENT
  Sex: Male
  Weight: 95.24 kg

DRUGS (9)
  1. PROPANOLOL [PROPRANOLOL] [Concomitant]
     Active Substance: PROPRANOLOL HYDROCHLORIDE
  2. DUPIXENT [Suspect]
     Active Substance: DUPILUMAB
     Indication: DERMATITIS ATOPIC
  3. VALSARTAN. [Concomitant]
     Active Substance: VALSARTAN
  4. FENOFIBRATE. [Concomitant]
     Active Substance: FENOFIBRATE
  5. LEVETIRACETAM. [Concomitant]
     Active Substance: LEVETIRACETAM
  6. DUPIXENT [Suspect]
     Active Substance: DUPILUMAB
     Indication: PSORIASIS
     Dosage: 300 MG, QOW
     Route: 058
     Dates: start: 201711
  7. METFORMIN [Concomitant]
     Active Substance: METFORMIN HYDROCHLORIDE
  8. ATORVASTATIN CALCIUM. [Concomitant]
     Active Substance: ATORVASTATIN CALCIUM
  9. MONTELUKAST [Concomitant]
     Active Substance: MONTELUKAST SODIUM

REACTIONS (7)
  - Product use in unapproved indication [Unknown]
  - Pruritus [Recovering/Resolving]
  - Myocardial infarction [Recovering/Resolving]
  - Skin fissures [Unknown]
  - Dry skin [Recovering/Resolving]
  - Skin exfoliation [Unknown]
  - Herpes zoster [Unknown]

NARRATIVE: CASE EVENT DATE: 201811
